FAERS Safety Report 11327925 (Version 1)
Quarter: 2015Q3

REPORT INFORMATION
  Report Type: Spontaneous
  Country: US (occurrence: US)
  Receive Date: 20150731
  Receipt Date: 20150731
  Transmission Date: 20151125
  Serious: No
  Sender: FDA-Public Use
  Company Number: US-ASTRAZENECA-2015SE72673

PATIENT
  Sex: Female

DRUGS (1)
  1. NEXIUM [Suspect]
     Active Substance: ESOMEPRAZOLE MAGNESIUM
     Dosage: TWO TIMES A DAY
     Route: 048

REACTIONS (5)
  - Intentional product misuse [Unknown]
  - Emotional distress [Unknown]
  - Off label use [Unknown]
  - Drug dose omission [Unknown]
  - Impaired gastric emptying [Unknown]
